FAERS Safety Report 11438967 (Version 1)
Quarter: 2015Q3

REPORT INFORMATION
  Report Type: Spontaneous
  Country: US (occurrence: US)
  Receive Date: 20150901
  Receipt Date: 20150901
  Transmission Date: 20151125
  Serious: No
  Sender: FDA-Public Use
  Company Number: US-ASTRAZENECA-2015SE81275

PATIENT
  Age: 59 Year
  Sex: Female
  Weight: 49.9 kg

DRUGS (1)
  1. ARIMIDEX [Suspect]
     Active Substance: ANASTROZOLE
     Indication: BREAST CANCER
     Route: 048
     Dates: start: 201302, end: 20150819

REACTIONS (10)
  - Pain [Unknown]
  - Feeling abnormal [Unknown]
  - Cognitive disorder [Unknown]
  - Arthralgia [Unknown]
  - Stress [Unknown]
  - Insomnia [Unknown]
  - Memory impairment [Unknown]
  - Anxiety [Unknown]
  - Intentional product misuse [Unknown]
  - Thyroid disorder [Unknown]

NARRATIVE: CASE EVENT DATE: 201302
